FAERS Safety Report 12474206 (Version 2)
Quarter: 2016Q3

REPORT INFORMATION
  Report Type: Spontaneous
  Country: IT (occurrence: IT)
  Receive Date: 20160616
  Receipt Date: 20160711
  Transmission Date: 20161109
  Serious: Yes (Other)
  Sender: FDA-Public Use
  Company Number: IT-ROCHE-1776786

PATIENT
  Age: 68 Year
  Sex: Male

DRUGS (4)
  1. ZELBORAF [Suspect]
     Active Substance: VEMURAFENIB
     Dosage: FOR ONE WEEK
     Route: 048
  2. DENOSUMAB [Concomitant]
     Active Substance: DENOSUMAB
     Route: 065
     Dates: start: 201402
  3. ZELBORAF [Suspect]
     Active Substance: VEMURAFENIB
     Route: 048
  4. ZELBORAF [Suspect]
     Active Substance: VEMURAFENIB
     Indication: METASTATIC MALIGNANT MELANOMA
     Route: 048
     Dates: start: 201309

REACTIONS (9)
  - Pyrexia [Recovered/Resolved]
  - Fatigue [Unknown]
  - Pruritus [Unknown]
  - Rash morbilliform [Recovered/Resolved]
  - Nausea [Unknown]
  - Palmoplantar keratoderma [Unknown]
  - Polycythaemia vera [Recovering/Resolving]
  - Stomatitis [Unknown]
  - Dry skin [Unknown]

NARRATIVE: CASE EVENT DATE: 201309
